FAERS Safety Report 15689596 (Version 1)
Quarter: 2018Q4

REPORT INFORMATION
  Report Type: Spontaneous
  Country: BR (occurrence: BR)
  Receive Date: 20181205
  Receipt Date: 20181205
  Transmission Date: 20190205
  Serious: Yes (Hospitalization)
  Sender: FDA-Public Use
  Company Number: BR-SA-2018SA306656

PATIENT
  Age: 91 Year
  Sex: Male
  Weight: 78.9 kg

DRUGS (1)
  1. CLEXANE [Suspect]
     Active Substance: ENOXAPARIN SODIUM
     Indication: THROMBOSIS PROPHYLAXIS
     Dosage: 40 MG, QD,10 SYRINGES
     Route: 058
     Dates: start: 20181006, end: 20181010

REACTIONS (1)
  - Post procedural discharge [Recovered/Resolved]

NARRATIVE: CASE EVENT DATE: 20181010
